FAERS Safety Report 5505646-5 (Version None)
Quarter: 2007Q4

REPORT INFORMATION
  Report Type: 
  Country: None (occurrence: None)
  Receive Date: 20071102
  Receipt Date: 20071022
  Transmission Date: 20080405
  Serious: Yes (Death, Other)
  Sender: FDA-Public Use
  Company Number: US-PFIZER INC-2007069662

PATIENT
  Sex: Male
  Weight: 173.3 kg

DRUGS (7)
  1. LYRICA [Suspect]
     Indication: DIABETIC NEUROPATHY
     Route: 048
  2. HUMULIN 70/30 [Concomitant]
     Route: 058
  3. KLOR-CON [Concomitant]
     Route: 048
  4. AUGMENTIN '125' [Concomitant]
     Route: 048
  5. ULTRAM [Concomitant]
     Route: 048
  6. ZANTAC [Concomitant]
  7. OXYGEN [Concomitant]
     Indication: DYSPNOEA

REACTIONS (9)
  - AGITATION [None]
  - BLOOD CHLORIDE DECREASED [None]
  - BLOOD CREATININE INCREASED [None]
  - BLOOD UREA INCREASED [None]
  - DEATH [None]
  - GLYCOSYLATED HAEMOGLOBIN INCREASED [None]
  - MENTAL STATUS CHANGES [None]
  - RESPIRATORY ACIDOSIS [None]
  - WHITE BLOOD CELL COUNT INCREASED [None]
